FAERS Safety Report 24365747 (Version 1)
Quarter: 2024Q3

REPORT INFORMATION
  Report Type: Spontaneous
  Country: US (occurrence: US)
  Receive Date: 20240926
  Receipt Date: 20240926
  Transmission Date: 20241017
  Serious: No
  Sender: JOHNSON AND JOHNSON
  Company Number: US-JNJFOC-20240946007

PATIENT

DRUGS (1)
  1. WOMENS ROGAINE UNSCENTED [Interacting]
     Active Substance: MINOXIDIL
     Indication: Alopecia
     Route: 065
     Dates: start: 202404

REACTIONS (2)
  - Hypotension [Unknown]
  - Drug interaction [Unknown]
